FAERS Safety Report 9851932 (Version 1)
Quarter: 2014Q1

REPORT INFORMATION
  Report Type: Spontaneous
  Country: US (occurrence: None)
  Receive Date: 20140127
  Receipt Date: 20140127
  Transmission Date: 20141002
  Serious: Yes (Other)
  Sender: FDA-Public Use
  Company Number: 2014US00075

PATIENT
  Sex: 0

DRUGS (4)
  1. GEMCITABINE\GEMCITABINE HYDROCHLORIDE [Suspect]
     Indication: ADENOCARCINOMA PANCREAS
     Dosage: ON DAY 1 OF EACH OF THE 4 CYCLES OVER 2 WEEKS
  2. BEVACIZUMAB [Suspect]
     Indication: ADENOCARCINOMA PANCREAS
     Dosage: DAYS 1 AND 15 OF CHEMORADIATION AND DAY 1 OF EACH OF THE 4 CYCLES PRE CHEMORADIATION INFUSION
  3. OXALIPLATIN [Suspect]
     Indication: ADENOCARCINOMA PANCREAS
     Dosage: ON DAYS 1 15 29 DURING CHEMO RADIATION DAY 2 OF EACH 4 CYCKES , PRE CHEMORADIATION INFUSION
  4. 5-FLUOROURACIL [Suspect]
     Indication: ADENOCARCINOMA PANCREAS
     Dosage: ON DAYS 1 15 29 DURING CHEMRAODIATION ADN 2 OF EACH OF 4 CYCLES PER PRECHEMORADIATION INFUSION

REACTIONS (4)
  - Pulmonary embolism [None]
  - Nausea [None]
  - Diarrhoea [None]
  - Vomiting [None]
